FAERS Safety Report 8598501-8 (Version None)
Quarter: 2012Q3

REPORT INFORMATION
  Report Type: 
  Country: None (occurrence: None)
  Receive Date: 20120816
  Receipt Date: 20120813
  Transmission Date: 20120928
  Serious: Yes (Other)
  Sender: FDA-Public Use
  Company Number: PHEH2012US015837

PATIENT
  Age: 28 Year
  Sex: Female
  Weight: 47.166 kg

DRUGS (8)
  1. NAPROXEN [Concomitant]
  2. BACLOFEN [Concomitant]
  3. MIRENA [Concomitant]
  4. ADDERALL XR 10 [Concomitant]
  5. CELEXA [Concomitant]
  6. GILENYA [Suspect]
     Indication: RELAPSING-REMITTING MULTIPLE SCLEROSIS
     Dosage: 0.5 MG, QD
     Route: 048
     Dates: start: 20120416
  7. XANAX [Concomitant]
  8. FLEXERIL [Concomitant]

REACTIONS (2)
  - DIZZINESS [None]
  - FALL [None]
